FAERS Safety Report 12599794 (Version 1)
Quarter: 2016Q3

REPORT INFORMATION
  Report Type: Spontaneous
  Country: AT (occurrence: AT)
  Receive Date: 20160727
  Receipt Date: 20160727
  Transmission Date: 20161109
  Serious: Yes (Other)
  Sender: FDA-Public Use
  Company Number: AT-FERRINGPH-2016FE03339

PATIENT

DRUGS (4)
  1. RESTEX [Concomitant]
     Active Substance: BENSERAZIDE
  2. TRITTICO [Concomitant]
     Active Substance: TRAZODONE HYDROCHLORIDE
  3. ANTISTAX                           /01364605/ [Concomitant]
  4. PICOPREP [Suspect]
     Active Substance: CITRIC ACID MONOHYDRATE\MAGNESIUM OXIDE\SODIUM PICOSULFATE
     Indication: BOWEL PREPARATION
     Dosage: 1 DF, UNK
     Route: 065
     Dates: start: 20160629, end: 20160629

REACTIONS (5)
  - Electrolyte imbalance [Recovered/Resolved]
  - Hyponatraemia [Recovered/Resolved]
  - Hypochloraemia [Recovered/Resolved]
  - Circulatory collapse [Recovered/Resolved]
  - Nausea [Recovered/Resolved]

NARRATIVE: CASE EVENT DATE: 201606
